FAERS Safety Report 8169802-2 (Version None)
Quarter: 2012Q1

REPORT INFORMATION
  Report Type: 
  Country: None (occurrence: None)
  Receive Date: 20120222
  Receipt Date: 20120210
  Transmission Date: 20120608
  Serious: Yes (Death, Hospitalization, Other)
  Sender: FDA-Public Use
  Company Number: 2012ES0052

PATIENT
  Age: 10 Year
  Sex: Female

DRUGS (1)
  1. ANAKINRA (ANAKINRA) [Suspect]
     Indication: JUVENILE ARTHRITIS

REACTIONS (11)
  - COAGULATION TIME PROLONGED [None]
  - RESPIRATORY FAILURE [None]
  - OEDEMA [None]
  - DISEASE RECURRENCE [None]
  - NERVOUS SYSTEM DISORDER [None]
  - HISTIOCYTOSIS HAEMATOPHAGIC [None]
  - HEPATIC FAILURE [None]
  - JUVENILE ARTHRITIS [None]
  - PNEUMONIA MYCOPLASMAL [None]
  - CONVULSION [None]
  - RENAL FAILURE [None]
